FAERS Safety Report 15269536 (Version 1)
Quarter: 2018Q3

REPORT INFORMATION
  Report Type: Spontaneous
  Country: US (occurrence: US)
  Receive Date: 20180726
  Receipt Date: 20180726
  Transmission Date: 20181010
  Serious: No
  Sender: FDA-Public Use
  Company Number: None

PATIENT
  Age: 5 Month
  Sex: Female
  Weight: 5 kg

DRUGS (3)
  1. SMOFLIPID [Suspect]
     Active Substance: FISH OIL\MEDIUM-CHAIN TRIGLYCERIDES\OLIVE OIL\SOYBEAN OIL
     Indication: LIVER INJURY
     Route: 042
     Dates: start: 20180706, end: 20180707
  2. SMOFLIPID [Suspect]
     Active Substance: FISH OIL\MEDIUM-CHAIN TRIGLYCERIDES\OLIVE OIL\SOYBEAN OIL
     Indication: HISTIOCYTOSIS HAEMATOPHAGIC
     Route: 042
     Dates: start: 20180706, end: 20180707
  3. SMOFLIPID [Suspect]
     Active Substance: FISH OIL\MEDIUM-CHAIN TRIGLYCERIDES\OLIVE OIL\SOYBEAN OIL
     Indication: DRUG THERAPY
     Dates: start: 20180710, end: 20180713

REACTIONS (6)
  - Alanine aminotransferase increased [None]
  - Aspartate aminotransferase increased [None]
  - Febrile neutropenia [None]
  - Histiocytosis haematophagic [None]
  - Dyspnoea [None]
  - Condition aggravated [None]

NARRATIVE: CASE EVENT DATE: 20180706
